FAERS Safety Report 18740170 (Version 3)
Quarter: 2021Q1

REPORT INFORMATION
  Report Type: Spontaneous
  Country: US (occurrence: US)
  Receive Date: 20210114
  Receipt Date: 20210223
  Transmission Date: 20210419
  Serious: Yes (Other)
  Sender: FDA-Public Use
  Company Number: US-ROCHE-2747608

PATIENT
  Sex: Female
  Weight: 90 kg

DRUGS (4)
  1. ACTIVASE [Suspect]
     Active Substance: ALTEPLASE
  2. ACTIVASE [Suspect]
     Active Substance: ALTEPLASE
     Indication: VISUAL FIELD DEFECT
  3. ACTIVASE [Suspect]
     Active Substance: ALTEPLASE
  4. ACTIVASE [Suspect]
     Active Substance: ALTEPLASE
     Indication: CEREBROVASCULAR ACCIDENT
     Dosage: LYOPHILIZED VIALS 100 MG
     Route: 042
     Dates: start: 20210108, end: 20210108

REACTIONS (4)
  - Product quality issue [Unknown]
  - No adverse event [Unknown]
  - Off label use [Unknown]
  - Intentional product use issue [Unknown]
